FAERS Safety Report 25902228 (Version 1)
Quarter: 2025Q4

REPORT INFORMATION
  Report Type: Spontaneous
  Country: EU (occurrence: EU)
  Receive Date: 20251009
  Receipt Date: 20251009
  Transmission Date: 20260118
  Serious: Yes (Life-Threatening, Hospitalization)
  Sender: FRESENIUS KABI
  Company Number: None

PATIENT
  Age: 15 Year
  Sex: Male
  Weight: 68 kg

DRUGS (4)
  1. TYENNE [Suspect]
     Active Substance: TOCILIZUMAB-AAZG
     Indication: Takayasu^s arteritis
     Dosage: 520 MG TWICE WEEKLY
     Route: 042
     Dates: start: 20250915, end: 20250915
  2. Omeprazole Olpha 20 mg gastro-resistant capsules, hard [Concomitant]
     Indication: Product used for unknown indication
     Route: 048
     Dates: start: 20250915, end: 20250915
  3. MEDROL [Concomitant]
     Active Substance: METHYLPREDNISOLONE
     Indication: Takayasu^s arteritis
     Route: 048
     Dates: start: 20250915, end: 20250915
  4. Aspirin Cardio 100 mg enteric-coated tablets [Concomitant]
     Indication: Takayasu^s arteritis
     Route: 048
     Dates: start: 20250915, end: 20250915

REACTIONS (7)
  - Anaphylactic reaction [Recovered/Resolved]
  - Erythema [Recovered/Resolved]
  - Lip swelling [Recovered/Resolved]
  - Eyelid oedema [Recovered/Resolved]
  - Urticaria [Recovered/Resolved]
  - Dyspnoea [Recovered/Resolved]
  - Tongue oedema [Recovered/Resolved]

NARRATIVE: CASE EVENT DATE: 20250915
